FAERS Safety Report 8317006-2 (Version None)
Quarter: 2012Q2

REPORT INFORMATION
  Report Type: 
  Country: None (occurrence: None)
  Receive Date: 20120427
  Receipt Date: 20120420
  Transmission Date: 20120825
  Serious: Yes (Hospitalization)
  Sender: FDA-Public Use
  Company Number: DE-TEVA-334808USA

PATIENT
  Sex: Female
  Weight: 97.5 kg

DRUGS (13)
  1. METOPROLOL SUCCINATE [Concomitant]
  2. ENALAPRIL MALEATE [Concomitant]
  3. RITUXIMAB [Suspect]
     Dates: start: 20110404
  4. XIPAMIDE [Concomitant]
  5. HYDROCHLOROTHIAZIDE [Concomitant]
  6. PANTOPRAZOLE SODIUM [Concomitant]
  7. BACTRIM [Concomitant]
  8. ENOXAPARIN SODIUM [Concomitant]
  9. TREANDA [Suspect]
     Route: 042
     Dates: start: 20110405
  10. PROCHLORPERAZINE [Concomitant]
  11. VALORON N [Concomitant]
  12. PREDNISONE [Concomitant]
  13. ALLOPURINOL [Concomitant]

REACTIONS (1)
  - THROMBOSIS [None]
